FAERS Safety Report 15103972 (Version 1)
Quarter: 2018Q2

REPORT INFORMATION
  Report Type: Spontaneous
  Country: US (occurrence: US)
  Receive Date: 20180611
  Receipt Date: 20180611
  Transmission Date: 20180711
  Serious: No
  Sender: FDA-Public Use
  Company Number: None

PATIENT
  Age: 41 Year
  Sex: Female

DRUGS (1)
  1. RISPERDAL CONSTA [Suspect]
     Active Substance: RISPERIDONE
     Indication: SCHIZOAFFECTIVE DISORDER
     Dosage: ?          OTHER FREQUENCY:EVERY 2 WEEKS ;?
     Route: 030
     Dates: start: 20060627

REACTIONS (2)
  - Wrong technique in product usage process [None]
  - Drug dose omission [None]

NARRATIVE: CASE EVENT DATE: 20180530
